FAERS Safety Report 25920879 (Version 1)
Quarter: 2025Q4

REPORT INFORMATION
  Report Type: Spontaneous
  Country: US (occurrence: US)
  Receive Date: 20251014
  Receipt Date: 20251014
  Transmission Date: 20260117
  Serious: Yes (Hospitalization)
  Sender: BAYER HEALTHCARE LLC
  Company Number: US-BAYER-2025A133189

PATIENT
  Age: 50 Year
  Sex: Female

DRUGS (2)
  1. ALEVE [Suspect]
     Active Substance: NAPROXEN SODIUM
     Indication: Headache
     Dosage: 2 DF, QD
     Route: 048
     Dates: start: 200404, end: 200404
  2. ALEVE [Suspect]
     Active Substance: NAPROXEN SODIUM
     Indication: Pain

REACTIONS (4)
  - Eye swelling [Recovered/Resolved]
  - Swelling face [None]
  - Expired product administered [None]
  - Lip swelling [Recovered/Resolved]

NARRATIVE: CASE EVENT DATE: 20040401
